FAERS Safety Report 13168186 (Version 1)
Quarter: 2017Q1

REPORT INFORMATION
  Report Type: Spontaneous
  Country: CA (occurrence: CA)
  Receive Date: 20170131
  Receipt Date: 20170131
  Transmission Date: 20170428
  Serious: Yes (Hospitalization, Other)
  Sender: FDA-Public Use
  Company Number: CA-CELLTRION INC.-2016CA011030

PATIENT

DRUGS (2)
  1. INFLECTRA [Suspect]
     Active Substance: INFLIXIMAB-DYYB
     Indication: ANKYLOSING SPONDYLITIS
     Dosage: 400 MG, CYCLIC, EVERY 0,2,6 WEEKS, THEN EVERY 8 WEEKS FOR 12 MONTHS
     Route: 042
     Dates: start: 20160511
  2. ENBREL [Concomitant]
     Active Substance: ETANERCEPT
     Dosage: UNK

REACTIONS (4)
  - Condition aggravated [Not Recovered/Not Resolved]
  - Pain [Not Recovered/Not Resolved]
  - Intestinal ulcer [Not Recovered/Not Resolved]
  - Drug ineffective [Not Recovered/Not Resolved]

NARRATIVE: CASE EVENT DATE: 201605
